FAERS Safety Report 12433721 (Version 1)
Quarter: 2016Q2

REPORT INFORMATION
  Report Type: Spontaneous
  Country: GB (occurrence: GB)
  Receive Date: 20160603
  Receipt Date: 20160603
  Transmission Date: 20160815
  Serious: Yes (Hospitalization, Other)
  Sender: FDA-Public Use
  Company Number: GB-BAYER-2016-108391

PATIENT
  Age: 40 Year
  Sex: Female
  Weight: 95.25 kg

DRUGS (1)
  1. MIRENA [Suspect]
     Active Substance: LEVONORGESTREL
     Indication: CONTRACEPTION
     Dosage: 20 MCG/24HR, CONT
     Route: 015
     Dates: start: 2011, end: 2014

REACTIONS (9)
  - Pain in extremity [Recovered/Resolved]
  - Abdominal pain upper [Recovered/Resolved]
  - Depression [Recovered/Resolved]
  - Pruritus generalised [Recovered/Resolved]
  - Crying [Recovered/Resolved]
  - Rash [Recovered/Resolved]
  - Joint stiffness [Recovered/Resolved]
  - Thinking abnormal [Recovered/Resolved]
  - Mood altered [Recovered/Resolved]
